FAERS Safety Report 24640605 (Version 1)
Quarter: 2024Q4

REPORT INFORMATION
  Report Type: Report from Study
  Country: NL (occurrence: NL)
  Receive Date: 20241120
  Receipt Date: 20241120
  Transmission Date: 20250114
  Serious: Yes (Hospitalization)
  Sender: ABBVIE
  Company Number: NL-ABBVIE-6009431

PATIENT
  Sex: Male

DRUGS (14)
  1. CARBIDOPA\LEVODOPA [Suspect]
     Active Substance: CARBIDOPA\LEVODOPA
     Indication: Parkinson^s disease
     Dosage: LD:0.90ML, BIR:0.41ML/H, HIR:0.41ML/H, LIR:0.15ML/H, ED:0.20ML. REMAINS AT 24 HOURS
     Route: 058
     Dates: start: 20240722, end: 20240725
  2. CARBIDOPA\LEVODOPA [Suspect]
     Active Substance: CARBIDOPA\LEVODOPA
     Dosage: LD:0.90ML, BIR:0.44ML/H, HIR:0.44ML/H, LIR:0.17ML/H, TD:8.13ML, ED:0.20ML. REMAINS AT 24 HOURS
     Route: 058
     Dates: start: 20240725, end: 20240729
  3. CARBIDOPA\LEVODOPA [Suspect]
     Active Substance: CARBIDOPA\LEVODOPA
     Dosage: LD:0.90ML, BIR:0.35ML/H, HIR:0.35ML/H, LIR:0.15ML/H, ED:0.10ML. REMAINS AT 24 HOURS
     Route: 058
     Dates: start: 20240701, end: 20240715
  4. CARBIDOPA\LEVODOPA [Suspect]
     Active Substance: CARBIDOPA\LEVODOPA
     Dosage: LD:0.90ML, BIR:0.30ML/H, HIR:0.30ML/H, LIR:0.15ML/H, TD:6.00ML, ED:0.10ML. REMAINS AT 24 HOURS
     Route: 058
     Dates: start: 20240617, end: 20240624
  5. CARBIDOPA\LEVODOPA [Suspect]
     Active Substance: CARBIDOPA\LEVODOPA
     Dosage: LD:0.90ML, BIR:0.42ML/H, HIR:0.42ML/H, LIR:0.17ML/H, ED:0.20ML. REMAINS AT 24 HOURS
     Route: 058
     Dates: start: 20240819, end: 20240926
  6. CARBIDOPA\LEVODOPA [Suspect]
     Active Substance: CARBIDOPA\LEVODOPA
     Dosage: LD:0.90ML, BIR:0.48ML/H, HIR:0.48ML/H, LIR:0.17ML/H, TD:9.04ML, ED:0.20ML. REMAINS AT 24 HOURS
     Route: 058
     Dates: start: 20240729, end: 20240809
  7. CARBIDOPA\LEVODOPA [Suspect]
     Active Substance: CARBIDOPA\LEVODOPA
     Dosage: LD:0.90ML, BIR:0.46ML/H, LIR:0.17ML/H, ED:0.20ML. REMAINS AT 24 HOURS
     Route: 058
     Dates: start: 20240809, end: 20240813
  8. CARBIDOPA\LEVODOPA [Suspect]
     Active Substance: CARBIDOPA\LEVODOPA
     Dosage: LD:0.90ML, BIR:0.44ML/H, LIR:0.17ML/H, ED:0.20ML; TLD: 8.40ML. REMAINS AT 24 HOURS
     Route: 058
     Dates: start: 20240813, end: 20240819
  9. CARBIDOPA\LEVODOPA [Suspect]
     Active Substance: CARBIDOPA\LEVODOPA
     Dosage: LD:0.90ML, BIR:0.49ML/H, HIR:0.49ML/H, LIR:0.20ML/H, ED:0.20ML, TLD: 9.44ML. REMAINS AT 24 HOURS
     Route: 058
     Dates: start: 20241015
  10. CARBIDOPA\LEVODOPA [Suspect]
     Active Substance: CARBIDOPA\LEVODOPA
     Dosage: LD:0.90ML, BIR:0.37ML/H, HIR:0.37ML/H, LIR:0.15ML/H, TD:7.12ML, ED:0.20ML. REMAINS AT 24 HOURS
     Route: 058
     Dates: start: 20240715, end: 20240722
  11. CARBIDOPA\LEVODOPA [Suspect]
     Active Substance: CARBIDOPA\LEVODOPA
     Dosage: LD:0.90ML, BIR:0.32ML/H, HIR:0.32ML/H, LIR:0.15ML/H, ED:0.10ML. REMAINS AT 24 HOURS
     Route: 058
     Dates: start: 20240624, end: 20240701
  12. CARBIDOPA\LEVODOPA [Suspect]
     Active Substance: CARBIDOPA\LEVODOPA
     Dosage: LD:0.90ML, BIR:0.45ML/H, HIR:0.45ML/H, LIR:0.17ML/H, ED:0.20ML, TLD: 8.28ML. REMAINS AT 24 HOURS
     Route: 058
     Dates: start: 20240926, end: 20241015
  13. ACETAMINOPHEN [Concomitant]
     Active Substance: ACETAMINOPHEN
     Indication: Restless legs syndrome
  14. INSULIN NOS [Concomitant]
     Active Substance: INSULIN NOS
     Indication: Type 2 diabetes mellitus

REACTIONS (1)
  - Infusion site abscess [Not Recovered/Not Resolved]

NARRATIVE: CASE EVENT DATE: 20240101
